FAERS Safety Report 15257848 (Version 1)
Quarter: 2018Q3

REPORT INFORMATION
  Report Type: Spontaneous
  Country: US (occurrence: US)
  Receive Date: 20180718
  Receipt Date: 20180718
  Transmission Date: 20181010
  Serious: Yes (Other)
  Sender: FDA-Public Use
  Company Number: None

PATIENT
  Age: 69 Year
  Sex: Female
  Weight: 78 kg

DRUGS (1)
  1. LEVETIRACETAM. [Suspect]
     Active Substance: LEVETIRACETAM
     Indication: SEIZURE
     Dosage: ?          OTHER FREQUENCY:X1 THEN 500 MG X1;?
     Route: 042
     Dates: start: 20180717, end: 20180718

REACTIONS (5)
  - Dialysis [None]
  - Belligerence [None]
  - Aggression [None]
  - Agitation [None]
  - Serotonin syndrome [None]

NARRATIVE: CASE EVENT DATE: 20180718
